FAERS Safety Report 4624462-X (Version None)
Quarter: 2005Q2

REPORT INFORMATION
  Report Type: 
  Country: None (occurrence: None)
  Receive Date: 20050325
  Receipt Date: 20050126
  Transmission Date: 20051028
  Serious: No
  Sender: FDA-Public Use
  Company Number: US_0502113359

PATIENT
  Age: 66 Year
  Sex: Female
  Weight: 70 kg

DRUGS (2)
  1. FORTEO [Suspect]
     Indication: OSTEOPOROSIS
     Dosage: 20  UG DAY
     Dates: start: 20041101
  2. PROGESTERONE [Concomitant]

REACTIONS (3)
  - ASTHENIA [None]
  - INJECTION SITE PAIN [None]
  - LIBIDO DECREASED [None]
